FAERS Safety Report 4828125-7 (Version None)
Quarter: 2005Q4

REPORT INFORMATION
  Report Type: 
  Country: None (occurrence: None)
  Receive Date: 20051110
  Receipt Date: 20051028
  Transmission Date: 20060501
  Serious: Yes (Other)
  Sender: FDA-Public Use
  Company Number: HQWYE304328OCT05

PATIENT
  Age: 47 Year
  Sex: Male

DRUGS (5)
  1. AMIODARONE HCL [Suspect]
     Indication: VENTRICULAR TACHYCARDIA
     Dosage: 400 MG 1X PER 1 DAY; ORAL, 200 MG 1X PER DAY; ORAL
     Route: 048
     Dates: start: 20050808, end: 20050814
  2. AMIODARONE HCL [Suspect]
     Indication: VENTRICULAR TACHYCARDIA
     Dosage: 400 MG 1X PER 1 DAY; ORAL, 200 MG 1X PER DAY; ORAL
     Route: 048
     Dates: start: 20050815, end: 20050824
  3. WARFARIN [Concomitant]
  4. ENALAPRIL MALEATE [Concomitant]
  5. MARZULENE (SODIUM GUALENATE) [Concomitant]

REACTIONS (4)
  - BLOOD LACTATE DEHYDROGENASE INCREASED [None]
  - CHOLELITHIASIS [None]
  - HEPATIC FUNCTION ABNORMAL [None]
  - HEPATIC STEATOSIS [None]
